FAERS Safety Report 20885083 (Version 4)
Quarter: 2022Q3

REPORT INFORMATION
  Report Type: Report from Study
  Country: DE (occurrence: DE)
  Receive Date: 20220527
  Receipt Date: 20220803
  Transmission Date: 20221027
  Serious: Yes (Hospitalization)
  Sender: FDA-Public Use
  Company Number: DE-CELGENE-DEU-20210405624

PATIENT
  Sex: Female
  Weight: 71 kg

DRUGS (36)
  1. CARBOPLATIN [Suspect]
     Active Substance: CARBOPLATIN
     Indication: Lung squamous cell carcinoma metastatic
     Dosage: TITRATED TO AN AUC OF 6MG/ML/MIN
     Route: 042
     Dates: start: 20210212, end: 20210212
  2. CARBOPLATIN [Suspect]
     Active Substance: CARBOPLATIN
     Dosage: TITRATED TO AN AUC OF 6MG/ML/MIN
     Route: 042
     Dates: start: 20210310, end: 20210422
  3. ABRAXANE [Suspect]
     Active Substance: PACLITAXEL
     Indication: Lung squamous cell carcinoma metastatic
     Dosage: FREQUENCY TEXT: EVERY 3 WEEK ON DAYS 1, 8 AND 15?DAYS1,8,15 OF EACH THREE WEEKS
     Route: 042
     Dates: start: 20210212, end: 20210212
  4. ABRAXANE [Suspect]
     Active Substance: PACLITAXEL
     Dosage: FREQUENCY TEXT: EVERY 3 WEEK ON DAYS 1, 8 AND 15?100 MILLIGRAM/SQ. METER
     Route: 042
     Dates: start: 20210218, end: 20210218
  5. ABRAXANE [Suspect]
     Active Substance: PACLITAXEL
     Dosage: FREQUENCY TEXT: EVERY 3 WEEK ON DAYS 1, 8 AND 15
     Route: 042
     Dates: start: 20210310, end: 20210407
  6. ABRAXANE [Suspect]
     Active Substance: PACLITAXEL
     Dosage: FREQUENCY TEXT: NOT PROVIDED?CYCLE 4 DAY 15, INDUCTION CYCLE
     Route: 042
     Dates: start: 20210422, end: 20210506
  7. PEMBROLIZUMAB [Suspect]
     Active Substance: PEMBROLIZUMAB
     Indication: Lung squamous cell carcinoma stage IV
     Dosage: 200 MILLIGRAM
     Route: 042
     Dates: start: 20210212, end: 20210212
  8. PEMBROLIZUMAB [Suspect]
     Active Substance: PEMBROLIZUMAB
     Indication: Non-small cell lung cancer stage IV
     Dosage: 200 MILLIGRAM
     Route: 042
     Dates: start: 20210331, end: 20210422
  9. RAMIPRIL [Concomitant]
     Active Substance: RAMIPRIL
     Indication: Product used for unknown indication
     Dosage: 2.5 MILLIGRAM
     Route: 048
     Dates: start: 20090101
  10. RAMIPRIL [Concomitant]
     Active Substance: RAMIPRIL
     Dosage: 2.5 MILLIGRAM
     Route: 048
     Dates: start: 20091001
  11. RAMIPRIL [Concomitant]
     Active Substance: RAMIPRIL
     Dosage: FREQUENCY TEXT: NOT PROVIDED
     Route: 048
     Dates: start: 20210101
  12. PANTOPRAZOLE SODIUM [Concomitant]
     Active Substance: PANTOPRAZOLE SODIUM
     Indication: Prophylaxis
     Dosage: 100 MILLIGRAM
     Route: 048
     Dates: start: 20210101
  13. PANTOPRAZOLE SODIUM [Concomitant]
     Active Substance: PANTOPRAZOLE SODIUM
     Dosage: 100 MILLIGRAM
     Route: 042
     Dates: start: 20210212, end: 20210212
  14. CHOLECALCIFEROL [Concomitant]
     Active Substance: CHOLECALCIFEROL
     Indication: Prophylaxis
     Dosage: 285.7143 IU (INTERNATIONAL UNIT)
     Route: 048
     Dates: start: 20210101
  15. ALLOPURINOL [Concomitant]
     Active Substance: ALLOPURINOL
     Indication: Hyperuricaemia
     Dosage: 100 MILLIGRAM
     Route: 048
     Dates: start: 20210219
  16. LOPERAMIDE HYDROCHLORIDE [Concomitant]
     Active Substance: LOPERAMIDE HYDROCHLORIDE
     Indication: Diarrhoea
     Dosage: 8 MILLIGRAM
     Route: 048
     Dates: start: 20210225
  17. CETIRIZINE HYDROCHLORIDE [Concomitant]
     Active Substance: CETIRIZINE HYDROCHLORIDE
     Indication: Rash
     Dosage: FREQUENCY TEXT: PRN
     Route: 048
     Dates: start: 20210304
  18. LEVOTHYROXINE SODIUM [Concomitant]
     Active Substance: LEVOTHYROXINE SODIUM
     Indication: Product used for unknown indication
     Dosage: 100 MICROGRAM
     Route: 048
     Dates: start: 20090101, end: 20210324
  19. LEVOTHYROXINE SODIUM [Concomitant]
     Active Substance: LEVOTHYROXINE SODIUM
     Dosage: 2.5 MILLIGRAM
     Route: 048
     Dates: start: 20210301
  20. LEVOTHYROXINE SODIUM [Concomitant]
     Active Substance: LEVOTHYROXINE SODIUM
     Dosage: 125 MILLIGRAM
     Route: 048
     Dates: start: 20210325
  21. METOCLOPRAMIDE [Concomitant]
     Active Substance: METOCLOPRAMIDE
     Indication: Nausea
     Dosage: 20 ML
     Route: 042
     Dates: start: 20210406
  22. FORTIMEL COMPACT [Concomitant]
     Indication: Weight decreased
     Dosage: 125 MILLILITER
     Route: 048
     Dates: start: 20210406
  23. OLIMEL [Concomitant]
     Active Substance: AMINO ACIDS\DEXTROSE\SOYBEAN OIL
     Indication: Weight decreased
     Dosage: FREQUENCY TEXT: NOT PROVIDED
     Route: 065
  24. HUMAN RED BLOOD CELL [Concomitant]
     Active Substance: HUMAN RED BLOOD CELL
     Indication: Anaemia
     Dosage: FREQUENCY TEXT: NOT PROVIDED
     Route: 065
  25. CERTOPARIN SODIUM [Concomitant]
     Active Substance: CERTOPARIN SODIUM
     Indication: Prophylaxis
     Dosage: FREQUENCY TEXT: NOT PROVIDED
     Route: 065
  26. NETUPITANT [Concomitant]
     Active Substance: NETUPITANT
     Indication: Prophylaxis
     Dosage: 300 MILLIGRAM
     Route: 048
     Dates: start: 20210212, end: 20210212
  27. NETUPITANT [Concomitant]
     Active Substance: NETUPITANT
     Indication: Premedication
     Dosage: DAILY DOSE : 300 TABLET?UNIT DOSE : 300 TABLET?300 TABLET
     Route: 048
     Dates: start: 20210331, end: 20210331
  28. DEXAMETHASONE [Concomitant]
     Active Substance: DEXAMETHASONE
     Indication: Prophylaxis
     Dosage: 8 MILLIGRAM
     Route: 042
     Dates: start: 20210212, end: 20210212
  29. DEXAMETHASONE [Concomitant]
     Active Substance: DEXAMETHASONE
     Indication: Premedication
     Dosage: 4 MILLIGRAM
     Route: 042
     Dates: start: 20210218, end: 20210218
  30. DEXAMETHASONE [Concomitant]
     Active Substance: DEXAMETHASONE
     Dosage: FREQUENCY TEXT: NOT PROVIDED?8 MILLIGRAM
     Route: 042
     Dates: start: 20210331, end: 20210331
  31. ONDANSETRON [Concomitant]
     Active Substance: ONDANSETRON
     Indication: Prophylaxis
     Dosage: 4 MILLIGRAM
     Route: 065
     Dates: start: 20210218, end: 20210218
  32. LOPERAMIDE [Concomitant]
     Active Substance: LOPERAMIDE
     Indication: Diarrhoea
     Dosage: 4 MILLIGRAM
     Route: 048
     Dates: start: 20210225
  33. FOSFOMYCIN [Concomitant]
     Active Substance: FOSFOMYCIN
     Indication: Urinary tract infection
     Dosage: FREQUENCY TEXT: NOT PROVIDED
     Route: 065
  34. SODIUM CHLORIDE [Concomitant]
     Active Substance: SODIUM CHLORIDE
     Indication: Dehydration
     Dosage: FREQUENCY TEXT: NOT PROVIDED
     Route: 042
     Dates: start: 20210225
  35. SODIUM CHLORIDE [Concomitant]
     Active Substance: SODIUM CHLORIDE
     Indication: Nausea
     Dosage: 1500 MILLILITER
     Route: 042
     Dates: start: 20210406, end: 20210406
  36. SODIUM CHLORIDE [Concomitant]
     Active Substance: SODIUM CHLORIDE
     Indication: Prophylaxis

REACTIONS (2)
  - Diarrhoea [Recovered/Resolved]
  - Dehydration [Recovered/Resolved]

NARRATIVE: CASE EVENT DATE: 20210219
